FAERS Safety Report 8317290 (Version 6)
Quarter: 2013Q3

REPORT INFORMATION
  Report Type: Report from Study
  Country: JP (occurrence: JP)
  Receive Date: 20111230
  Receipt Date: 20130821
  Transmission Date: 20140515
  Serious: Yes (Death, Hospitalization)
  Sender: FDA-Public Use
  Company Number: PHHO2011JP020571

PATIENT
  Age: 85 Year
  Sex: Male
  Weight: 56 kg

DRUGS (9)
  1. QAB149 [Suspect]
     Indication: CHRONIC OBSTRUCTIVE PULMONARY DISEASE
     Dosage: 150 UG, QD
     Dates: start: 20110712, end: 20111119
  2. ADALAT CR [Concomitant]
     Indication: HYPERTENSION
     Dosage: 40 MG, UNK
     Route: 048
     Dates: start: 20070706
  3. BLOPRESS [Concomitant]
     Indication: HYPERTENSION
     Dosage: 16 MG, UNK
     Route: 048
     Dates: start: 20060622
  4. FRANDOL [Concomitant]
     Indication: HYPERTENSION
     Dosage: 40 MG, UNK
     Route: 062
     Dates: start: 20030807, end: 20111120
  5. SENNOSIDE [Concomitant]
     Indication: CONSTIPATION
     Dosage: UNK
     Route: 048
     Dates: start: 20111007
  6. GASMOTIN [Concomitant]
     Indication: NAUSEA
     Dosage: 5 MG, UNK
     Route: 048
     Dates: start: 20111007
  7. SAWATENE [Concomitant]
     Indication: CHRONIC OBSTRUCTIVE PULMONARY DISEASE
     Dosage: 250 MG, UNK
     Route: 048
     Dates: start: 20110810, end: 20111120
  8. MOHRUS [Concomitant]
     Indication: BACK PAIN
     Dosage: 20 MG, UNK
     Route: 062
     Dates: start: 20111102, end: 20111120
  9. NAPAGELN [Concomitant]
     Indication: BACK PAIN
     Dosage: UNK
     Route: 062
     Dates: start: 20111102

REACTIONS (7)
  - Blood albumin decreased [Not Recovered/Not Resolved]
  - Anaemia [Not Recovered/Not Resolved]
  - Cardiac failure [Fatal]
  - Pneumonia [Fatal]
  - Diverticulitis [Not Recovered/Not Resolved]
  - Chronic obstructive pulmonary disease [Recovered/Resolved]
  - Cor pulmonale [Not Recovered/Not Resolved]
